FAERS Safety Report 17150286 (Version 1)
Quarter: 2019Q4

REPORT INFORMATION
  Report Type: Spontaneous
  Country: US (occurrence: US)
  Receive Date: 20191213
  Receipt Date: 20191213
  Transmission Date: 20200122
  Serious: No
  Sender: FDA-Public Use
  Company Number: US-BAYER-2019-225481

PATIENT
  Age: 93 Year
  Sex: Male

DRUGS (2)
  1. TAMSUL [Concomitant]
     Active Substance: TAMSULOSIN HYDROCHLORIDE
  2. MIRALAX [Suspect]
     Active Substance: POLYETHYLENE GLYCOL 3350
     Indication: GASTROINTESTINAL DISORDER
     Dosage: UNK, QD FOR OVER A YEAR
     Route: 048

REACTIONS (1)
  - Incorrect product administration duration [Unknown]
